FAERS Safety Report 7232347-8 (Version None)
Quarter: 2011Q1

REPORT INFORMATION
  Report Type: 
  Country: None (occurrence: None)
  Receive Date: 20110106
  Receipt Date: 20101228
  Transmission Date: 20110831
  Serious: Yes (Other)
  Sender: FDA-Public Use
  Company Number: DSA_44282_2010

PATIENT
  Age: 2 Month

DRUGS (1)
  1. ENALAPRIL MALEATE [Suspect]
     Indication: NEONATAL CARDIAC FAILURE
     Dosage: 0.01 MG/KG BID ORAL
     Route: 048

REACTIONS (1)
  - RENAL FAILURE ACUTE [None]
